FAERS Safety Report 10517109 (Version 1)
Quarter: 2014Q4

REPORT INFORMATION
  Report Type: Spontaneous
  Country: US (occurrence: None)
  Receive Date: 20141003
  Receipt Date: 20141003
  Transmission Date: 20150528
  Serious: Yes (Hospitalization, Other)
  Sender: FDA-Public Use
  Company Number: 1294880

PATIENT
  Sex: Female

DRUGS (1)
  1. PEGASYS [Suspect]
     Active Substance: PEGINTERFERON ALFA-2A
     Indication: CHRONIC HEPATITIS C

REACTIONS (8)
  - Hypersensitivity [None]
  - Peritonitis [None]
  - Alopecia [None]
  - Hepatic failure [None]
  - Ascites [None]
  - Diabetes mellitus [None]
  - Diabetic coma [None]
  - Transplant rejection [None]
